FAERS Safety Report 13822257 (Version 2)
Quarter: 2020Q3

REPORT INFORMATION
  Report Type: Report from Study
  Country: FR (occurrence: FR)
  Receive Date: 20170801
  Receipt Date: 20180316
  Transmission Date: 20201105
  Serious: Yes (Hospitalization)
  Sender: FDA-Public Use
  Company Number: FR-ASTRAZENECA-2017SE28562

PATIENT
  Age: 56 Year
  Sex: Female
  Weight: 69 kg

DRUGS (14)
  1. TREMELIMUMAB. [Suspect]
     Active Substance: TREMELIMUMAB
     Indication: NEOPLASM MALIGNANT
     Route: 042
     Dates: start: 20161228
  2. SMECTA [Concomitant]
     Active Substance: MONTMORILLONITE
     Indication: DIARRHOEA
     Dosage: PRN
     Route: 048
     Dates: start: 20170127
  3. AZITHROMYCIN ANHYDROUS. [Concomitant]
     Active Substance: AZITHROMYCIN ANHYDROUS
     Indication: HYPERTENSION
     Dosage: 500 MG DAILY
     Route: 048
     Dates: start: 20170309, end: 20170312
  4. TIORFAN [Concomitant]
     Active Substance: RACECADOTRIL
     Indication: DIARRHOEA
     Dosage: PRN
     Route: 048
     Dates: start: 20170127
  5. PREVISCAN (FLUINDIONE) [Concomitant]
     Active Substance: FLUINDIONE
     Indication: HYPERTENSION
     Dosage: DAILY
     Route: 048
     Dates: start: 2016
  6. SOLUPRED (PREDNISOLONE SODIUM SULFOBENZOATE) [Concomitant]
     Active Substance: PREDNISOLONE SODIUM METAZOATE
     Indication: HYPERTENSION
     Dosage: 60 MCG DAILY
     Route: 048
     Dates: start: 20170509
  7. REFRESH CELLUVISC [Concomitant]
     Active Substance: CARBOXYMETHYLCELLULOSE SODIUM
     Indication: HYPERTENSION
     Dosage: 1 APPLICATION FOUR TIMES DAILY
     Route: 047
     Dates: start: 20170309, end: 20170316
  8. DACRYOSERUM [Concomitant]
     Active Substance: BORIC ACID\SODIUM BORATE
     Indication: HYPERTENSION
     Dosage: 1 APPLICATION THREE TIMES DAILY
     Route: 047
     Dates: start: 20170309, end: 20170316
  9. MEDI4736 [Suspect]
     Active Substance: DURVALUMAB
     Indication: NEOPLASM MALIGNANT
     Route: 042
     Dates: start: 20161228
  10. SINTROM [Concomitant]
     Active Substance: ACENOCOUMAROL
     Indication: VENOUS THROMBOSIS
     Route: 048
     Dates: start: 2002
  11. VIT A [Concomitant]
     Indication: HYPERTENSION
     Dosage: 3 APPLICATION DAILY
     Route: 047
     Dates: start: 20170309, end: 20170316
  12. LEVOTHYROX [Concomitant]
     Active Substance: LEVOTHYROXINE
     Indication: HYPOTHYROIDISM
     Route: 048
     Dates: start: 20170223
  13. SOLUPRED (PREDNISOLONE SODIUM SULFOBENZOATE) [Concomitant]
     Active Substance: PREDNISOLONE SODIUM METAZOATE
     Indication: HYPERTENSION
     Dosage: 40 MG DAILY
     Route: 048
     Dates: start: 20170311, end: 20170506
  14. VOGALENE [Concomitant]
     Active Substance: METOPIMAZINE
     Indication: HYPERTENSION
     Dosage: THREE TIMES DAILY
     Route: 048
     Dates: start: 20170309

REACTIONS (1)
  - Vomiting [Recovered/Resolved]

NARRATIVE: CASE EVENT DATE: 20170311
